FAERS Safety Report 16136372 (Version 2)
Quarter: 2019Q3

REPORT INFORMATION
  Report Type: Report from Study
  Country: BR (occurrence: BR)
  Receive Date: 20190329
  Receipt Date: 20190815
  Transmission Date: 20191004
  Serious: Yes (Hospitalization, Other)
  Sender: FDA-Public Use
  Company Number: BR-SHIRE-BR201905225

PATIENT

DRUGS (6)
  1. HYQVIA [Suspect]
     Active Substance: HUMAN IMMUNOGLOBULIN G\HYALURONIDASE RECOMBINANT HUMAN
     Dosage: UNK EVERY 28 DAYS
     Route: 058
     Dates: start: 201905
  2. HYQVIA [Suspect]
     Active Substance: HUMAN IMMUNOGLOBULIN G\HYALURONIDASE RECOMBINANT HUMAN
     Dosage: 70 GRAM, EVERY 28 DAYS
     Route: 058
     Dates: start: 201808
  3. RHO(D) IMMUNE GLOBULIN INTRAVENOUS (HUMAN) [Concomitant]
     Active Substance: HUMAN RHO(D) IMMUNE GLOBULIN
     Indication: PRODUCT USED FOR UNKNOWN INDICATION
     Dosage: UNK
     Route: 042
     Dates: start: 201903
  4. HYQVIA [Suspect]
     Active Substance: HUMAN IMMUNOGLOBULIN G\HYALURONIDASE RECOMBINANT HUMAN
     Indication: PRIMARY IMMUNODEFICIENCY SYNDROME
     Dosage: 30 MILLILITER
     Route: 058
  5. ROCEFIN [Concomitant]
     Active Substance: CEFTRIAXONE SODIUM
     Indication: URINARY TRACT INFECTION
  6. HYQVIA [Suspect]
     Active Substance: HUMAN IMMUNOGLOBULIN G\HYALURONIDASE RECOMBINANT HUMAN
     Dosage: UNK
     Dates: start: 20190726

REACTIONS (19)
  - Pharyngitis [Unknown]
  - Pneumonia [Unknown]
  - Tachycardia [Unknown]
  - Fatigue [Unknown]
  - Meningitis aseptic [Unknown]
  - Weight increased [Unknown]
  - Back pain [Unknown]
  - Oropharyngeal pain [Unknown]
  - Sinusitis [Unknown]
  - Product supply issue [Unknown]
  - Infection [Unknown]
  - Vein disorder [Unknown]
  - Pyrexia [Unknown]
  - Nausea [Unknown]
  - Product dose omission [Unknown]
  - Ear pain [Unknown]
  - Incorrect dose administered [Unknown]
  - Pericarditis [Unknown]
  - Urinary tract infection [Recovering/Resolving]

NARRATIVE: CASE EVENT DATE: 20190213
